FAERS Safety Report 8341209-4 (Version None)
Quarter: 2012Q2

REPORT INFORMATION
  Report Type: 
  Country: None (occurrence: None)
  Receive Date: 20120507
  Receipt Date: 20120430
  Transmission Date: 20120825
  Serious: Yes (Hospitalization, Other)
  Sender: FDA-Public Use
  Company Number: PHHY2012FR018975

PATIENT
  Sex: Female
  Weight: 168 kg

DRUGS (9)
  1. ZOLEDRONOC ACID [Suspect]
     Dosage: 5 MG, UNK
     Route: 042
     Dates: start: 20111126
  2. BISOPROLOL FUMARATE [Concomitant]
     Dosage: UNK UKN, UNK
  3. ZOLEDRONOC ACID [Suspect]
     Dosage: UNK UKN, UNK
     Route: 042
  4. NOVOMIX [Concomitant]
     Dosage: UNK UKN, UNK
  5. ATARAX [Concomitant]
     Dosage: UNK UKN, UNK
  6. VALSARTAN  AND HYDROCHLOROTHIAZIDE [Concomitant]
     Dosage: UNK UKN, UNK
  7. ZOLEDRONOC ACID [Suspect]
     Indication: OSTEOPOROSIS
     Dosage: UNK UKN, UNK
     Route: 042
  8. TRAMADOL HCL [Concomitant]
     Dosage: UNK UKN, UNK
  9. PANTOPRAZOLE SODIUM [Concomitant]
     Dosage: UNK UKN, UNK

REACTIONS (8)
  - DIABETES MELLITUS INADEQUATE CONTROL [None]
  - ANKLE FRACTURE [None]
  - ACUTE PULMONARY OEDEMA [None]
  - CARDIAC DISORDER [None]
  - ANGINA PECTORIS [None]
  - FATIGUE [None]
  - RENAL FAILURE [None]
  - DYSPNOEA [None]
